FAERS Safety Report 5667840-2 (Version None)
Quarter: 2008Q1

REPORT INFORMATION
  Report Type: 
  Country: None (occurrence: None)
  Receive Date: 20080315
  Receipt Date: 20080206
  Transmission Date: 20080703
  Serious: No
  Sender: FDA-Public Use
  Company Number: US-ABBOTT-08P-163-0437208-00

PATIENT
  Sex: Male

DRUGS (3)
  1. HUMIRA [Suspect]
     Indication: PSORIASIS
     Route: 058
     Dates: start: 20031201
  2. HUMIRA [Suspect]
     Route: 058
  3. OLEX FOAM [Concomitant]
     Indication: PSORIASIS
     Route: 061

REACTIONS (2)
  - DRUG INEFFECTIVE [None]
  - GASTRIC DISORDER [None]
